FAERS Safety Report 6289295-X (Version None)
Quarter: 2009Q3

REPORT INFORMATION
  Report Type: 
  Country: None (occurrence: None)
  Receive Date: 20090730
  Receipt Date: 20090715
  Transmission Date: 20100115
  Serious: Yes (Life-Threatening, Hospitalization, Other)
  Sender: FDA-Public Use
  Company Number: DE-BIOGENIDEC-2009BI022242

PATIENT
  Age: 46 Year
  Sex: Male
  Weight: 90 kg

DRUGS (3)
  1. TYSABRI [Suspect]
     Indication: MULTIPLE SCLEROSIS
     Route: 042
     Dates: start: 20070629, end: 20090603
  2. BACLOFEN [Concomitant]
  3. TAMSULOSIN [Concomitant]
     Dates: start: 20070620, end: 20090603

REACTIONS (1)
  - SECONDARY PROGRESSIVE MULTIPLE SCLEROSIS [None]
